FAERS Safety Report 7492714-4 (Version None)
Quarter: 2011Q2

REPORT INFORMATION
  Report Type: 
  Country: None (occurrence: None)
  Receive Date: 20110519
  Receipt Date: 20110509
  Transmission Date: 20111010
  Serious: Yes (Death, Other)
  Sender: FDA-Public Use
  Company Number: JP-MERCK-1105USA02182

PATIENT
  Age: 80 Year
  Sex: Female

DRUGS (3)
  1. MINOCYCLINE [Concomitant]
     Route: 065
  2. CIPROFLOXACIN [Concomitant]
     Route: 065
  3. PEPCID [Suspect]
     Indication: PROPHYLAXIS AGAINST GASTROINTESTINAL ULCER
     Route: 048

REACTIONS (3)
  - GASTRIC ULCER [None]
  - ACUTE RESPIRATORY DISTRESS SYNDROME [None]
  - ACUTE LUNG INJURY [None]
